FAERS Safety Report 10643842 (Version 2)
Quarter: 2014Q4

REPORT INFORMATION
  Report Type: Report from Study
  Country: US (occurrence: US)
  Receive Date: 20141210
  Receipt Date: 20141222
  Transmission Date: 20150529
  Serious: Yes (Life-Threatening, Hospitalization)
  Sender: FDA-Public Use
  Company Number: US-ACTELION-A-NJ2014-109217

PATIENT
  Age: 53 Year
  Sex: Female

DRUGS (9)
  1. SILDENAFIL. [Concomitant]
     Active Substance: SILDENAFIL
  2. OXYGEN. [Concomitant]
     Active Substance: OXYGEN
  3. SOMA [Concomitant]
     Active Substance: CARISOPRODOL
     Dosage: UNK
     Dates: start: 2008
  4. TYVASO [Concomitant]
     Active Substance: TREPROSTINIL
  5. LASIX [Concomitant]
     Active Substance: FUROSEMIDE
     Dosage: 20 MG, QD
     Dates: start: 2008
  6. SYNTHROID [Concomitant]
     Active Substance: LEVOTHYROXINE SODIUM
     Dosage: 150 MG, QD
     Dates: start: 2008
  7. TRACLEER [Suspect]
     Active Substance: BOSENTAN\BOSENTAN MONOHYDRATE
     Indication: COR PULMONALE CHRONIC
     Dosage: UNK UNK, BID
     Route: 048
     Dates: start: 2008
  8. ADCIRCA [Concomitant]
     Active Substance: TADALAFIL
  9. NORCO [Concomitant]
     Active Substance: ACETAMINOPHEN\HYDROCODONE BITARTRATE
     Dosage: UNK, QID
     Dates: start: 2008

REACTIONS (10)
  - Joint injury [Unknown]
  - Head injury [Unknown]
  - Alcohol withdrawal syndrome [Recovered/Resolved]
  - Acidosis [Recovered/Resolved]
  - Asthenia [Unknown]
  - Syncope [Unknown]
  - Cardiac failure congestive [Unknown]
  - Mental status changes [Recovered/Resolved]
  - Amphetamines positive [Recovered/Resolved]
  - Fall [Unknown]

NARRATIVE: CASE EVENT DATE: 20141014
